FAERS Safety Report 9060932 (Version 2)
Quarter: 2013Q1

REPORT INFORMATION
  Report Type: Spontaneous
  Country: DE (occurrence: DE)
  Receive Date: 20130212
  Receipt Date: 20130226
  Transmission Date: 20140127
  Serious: Yes (Other)
  Sender: FDA-Public Use
  Company Number: PHHY2013DE013342

PATIENT
  Age: 52 Year
  Sex: Female

DRUGS (2)
  1. CICLOSPORIN [Suspect]
     Indication: ASTHMA
  2. XOLAIR [Concomitant]

REACTIONS (2)
  - Asthma [Recovering/Resolving]
  - Off label use [Unknown]
